FAERS Safety Report 13610952 (Version 1)
Quarter: 2017Q2

REPORT INFORMATION
  Report Type: Spontaneous
  Country: US (occurrence: US)
  Receive Date: 20170604
  Receipt Date: 20170604
  Transmission Date: 20170830
  Serious: Yes (Other)
  Sender: FDA-Public Use
  Company Number: None

PATIENT
  Sex: Female

DRUGS (1)
  1. PROAIR RESPICLICK [Suspect]
     Active Substance: ALBUTEROL SULFATE

REACTIONS (4)
  - Device failure [None]
  - Device breakage [None]
  - Drug effect decreased [None]
  - Product quality issue [None]

NARRATIVE: CASE EVENT DATE: 20170603
